FAERS Safety Report 5907134-0 (Version None)
Quarter: 2008Q4

REPORT INFORMATION
  Report Type: 
  Country: None (occurrence: None)
  Receive Date: 20081003
  Receipt Date: 20080924
  Transmission Date: 20090506
  Serious: Yes (Hospitalization, Other)
  Sender: FDA-Public Use
  Company Number: DE-BAYER-200826604GPV

PATIENT
  Age: 50 Year
  Sex: Female
  Weight: 77 kg

DRUGS (2)
  1. EOVIST [Suspect]
     Indication: HEPATIC ADENOMA
     Dosage: TOTAL DAILY DOSE: 10 ML
     Route: 042
     Dates: start: 20080821, end: 20080821
  2. ANTIHYPERTENSIVES NOS [Suspect]
     Indication: DRUG USE FOR UNKNOWN INDICATION

REACTIONS (2)
  - ECZEMA INFECTED [None]
  - PRURITUS [None]
